FAERS Safety Report 14210741 (Version 1)
Quarter: 2017Q4

REPORT INFORMATION
  Report Type: Other
  Country: US (occurrence: US)
  Receive Date: 20171121
  Receipt Date: 20171121
  Transmission Date: 20180321
  Serious: No
  Sender: FDA-Public Use
  Company Number: US-LEADING PHARMA-2034774

PATIENT
  Age: 40 Year
  Sex: Male

DRUGS (1)
  1. BENZTROPINE MESYLATE. [Suspect]
     Active Substance: BENZTROPINE MESYLATE

REACTIONS (1)
  - Acute postoperative sialadenitis [Unknown]
